FAERS Safety Report 15548654 (Version 2)
Quarter: 2018Q4

REPORT INFORMATION
  Report Type: Spontaneous
  Country: JP (occurrence: JP)
  Receive Date: 20181025
  Receipt Date: 20181026
  Transmission Date: 20190205
  Serious: Yes (Death)
  Sender: FDA-Public Use
  Company Number: JP-ROCHE-2204271

PATIENT
  Age: 30 Year
  Sex: Male

DRUGS (1)
  1. ACTEMRA [Suspect]
     Active Substance: TOCILIZUMAB
     Indication: CASTLEMAN^S DISEASE
     Dosage: DOSAGE IS UNCERTAIN.
     Route: 065

REACTIONS (7)
  - Sepsis [Fatal]
  - Aspergillus infection [Fatal]
  - Non-alcoholic fatty liver [Fatal]
  - Ascites [Fatal]
  - Drug ineffective [Unknown]
  - Hepatic cirrhosis [Fatal]
  - Febrile neutropenia [Fatal]
